APPROVED DRUG PRODUCT: TOBRAMYCIN
Active Ingredient: TOBRAMYCIN
Strength: 300MG/5ML
Dosage Form/Route: SOLUTION;INHALATION
Application: A210871 | Product #001
Applicant: LUOXIN AUROVITAS PHARMA CHENGDU CO LTD
Approved: Jan 22, 2021 | RLD: No | RS: No | Type: DISCN